FAERS Safety Report 5459417-9 (Version None)
Quarter: 2007Q3

REPORT INFORMATION
  Report Type: 
  Country: None (occurrence: None)
  Receive Date: 20070919
  Receipt Date: 20070912
  Transmission Date: 20080115
  Serious: Yes (Hospitalization)
  Sender: FDA-Public Use
  Company Number: US-AMGEN-US240953

PATIENT
  Sex: Female

DRUGS (2)
  1. PANITUMUMAB [Suspect]
     Indication: COLORECTAL CANCER
     Route: 042
     Dates: start: 20070814
  2. IRINOTECAN HCL [Suspect]
     Route: 065
     Dates: start: 20070814

REACTIONS (2)
  - CENTRAL LINE INFECTION [None]
  - NEUTROPENIA [None]
